FAERS Safety Report 9928718 (Version 1)
Quarter: 2014Q1

REPORT INFORMATION
  Report Type: Spontaneous
  Country: US (occurrence: US)
  Receive Date: 20140227
  Receipt Date: 20140227
  Transmission Date: 20141002
  Serious: Yes (Other)
  Sender: FDA-Public Use
  Company Number: US-ELI_LILLY_AND_COMPANY-US201402005942

PATIENT
  Sex: Female

DRUGS (4)
  1. CYMBALTA [Suspect]
     Indication: DEPRESSION
     Dosage: 120 MG, QD
     Route: 065
  2. HUMALOG [Concomitant]
     Indication: DIABETES MELLITUS
     Dosage: 36 IU, TID
     Route: 065
  3. LANTUS [Concomitant]
     Indication: DIABETES MELLITUS
     Dosage: 56 IU, BID
     Route: 065
  4. NITROSTAT [Concomitant]
     Indication: CHEST PAIN
     Dosage: UNK, PRN
     Route: 065

REACTIONS (1)
  - Depression [Not Recovered/Not Resolved]
